FAERS Safety Report 9676240 (Version 1)
Quarter: 2013Q4

REPORT INFORMATION
  Report Type: Report from Study
  Country: US (occurrence: US)
  Receive Date: 20131107
  Receipt Date: 20131107
  Transmission Date: 20140711
  Serious: Yes (Hospitalization, Other)
  Sender: FDA-Public Use
  Company Number: US-ABBVIE-13P-163-1164338-00

PATIENT
  Age: 49 Year
  Sex: Male
  Weight: 81.72 kg

DRUGS (4)
  1. HUMIRA [Suspect]
     Indication: PSORIATIC ARTHROPATHY
     Dates: start: 2008
  2. HUMIRA [Suspect]
     Indication: PSORIASIS
  3. PREDNISONE [Suspect]
     Indication: SWELLING FACE
     Dates: start: 201310, end: 201310
  4. UNKNOWN PAIN MEDICATION [Suspect]
     Indication: PROCEDURAL PAIN
     Dates: start: 201211, end: 201212

REACTIONS (13)
  - Coronary artery occlusion [Recovered/Resolved]
  - Myocardial infarction [Recovered/Resolved]
  - Dyspepsia [Recovered/Resolved]
  - Hypertension [Recovered/Resolved]
  - Joint swelling [Recovered/Resolved]
  - Contusion [Recovered/Resolved]
  - Haemorrhage [Recovered/Resolved]
  - Nail psoriasis [Recovering/Resolving]
  - Arthritis [Recovered/Resolved]
  - Haemorrhoids [Recovered/Resolved]
  - Constipation [Recovered/Resolved]
  - Swelling face [Recovered/Resolved]
  - Swelling face [Recovered/Resolved]
